FAERS Safety Report 5931689-3 (Version None)
Quarter: 2008Q4

REPORT INFORMATION
  Report Type: 
  Country: None (occurrence: None)
  Receive Date: 20081009
  Receipt Date: 20080507
  Transmission Date: 20090506
  Serious: Yes (Other)
  Sender: FDA-Public Use
  Company Number: PHEH2008US01443

PATIENT
  Age: 82 Year
  Sex: Male
  Weight: 86.2 kg

DRUGS (2)
  1. ZOMETA [Suspect]
     Indication: METASTASES TO BONE
     Dosage: 4 MG EVERY 4 WEEKS, INFUSION
     Dates: start: 20070801, end: 20071120
  2. DOCETAXEL [Concomitant]

REACTIONS (4)
  - BONE DISORDER [None]
  - METASTASIS [None]
  - OSTEONECROSIS [None]
  - PAIN [None]
